FAERS Safety Report 22359588 (Version 1)
Quarter: 2023Q2

REPORT INFORMATION
  Report Type: Spontaneous
  Country: US (occurrence: None)
  Receive Date: 20230523
  Receipt Date: 20230523
  Transmission Date: 20230722
  Serious: No
  Sender: FDA-Public Use
  Company Number: None

PATIENT
  Age: 63 Year
  Sex: Male

DRUGS (1)
  1. KEYTRUDA [Suspect]
     Active Substance: PEMBROLIZUMAB
     Indication: Transitional cell carcinoma
     Route: 042

REACTIONS (4)
  - Respiratory tract congestion [None]
  - Dyspepsia [None]
  - Tachycardia [None]
  - Nasal congestion [None]

NARRATIVE: CASE EVENT DATE: 20230403
